FAERS Safety Report 24079883 (Version 4)
Quarter: 2024Q3

REPORT INFORMATION
  Report Type: Spontaneous
  Country: US (occurrence: US)
  Receive Date: 20240711
  Receipt Date: 20240913
  Transmission Date: 20241017
  Serious: No
  Sender: PFIZER
  Company Number: US-SEATTLE GENETICS-2023SGN06963

PATIENT
  Age: 71 Year
  Sex: Female

DRUGS (5)
  1. TUKYSA [Suspect]
     Active Substance: TUCATINIB
     Dosage: UNK
     Route: 065
     Dates: end: 20230627
  2. TUKYSA [Suspect]
     Active Substance: TUCATINIB
     Dosage: 150MG 1 TAB TWICE A DAY, 50MG TAB 1 TAB TWICE A DAY
     Dates: end: 20240620
  3. TUKYSA [Suspect]
     Active Substance: TUCATINIB
     Dosage: 150MG 1 TAB TWICE A DAY, 50MG TAB 1 TAB TWICE A DAY
     Dates: start: 20240625, end: 20240629
  4. TUKYSA [Suspect]
     Active Substance: TUCATINIB
     Dosage: 150MG 1 TAB TWICE A DAY, 50MG TAB 1 TAB TWICE A DAY
  5. TUKYSA [Suspect]
     Active Substance: TUCATINIB
     Dosage: 200 MG, 2X/DAY (TUKYSA 150MG TAKE 1 TABLET TWICE A DAY, TUKYSA 50MG TAKE 1 TABLET TWICE A DAY)
     Dates: end: 20240730

REACTIONS (1)
  - Blood bilirubin increased [Unknown]
